FAERS Safety Report 22261119 (Version 1)
Quarter: 2023Q2

REPORT INFORMATION
  Report Type: Report from Study
  Country: BR (occurrence: BR)
  Receive Date: 20230427
  Receipt Date: 20230427
  Transmission Date: 20230722
  Serious: Yes (Hospitalization, Other)
  Sender: FDA-Public Use
  Company Number: BR-AKCEA THERAPEUTICS, INC.-2022IS004036

PATIENT

DRUGS (3)
  1. TEGSEDI [Suspect]
     Active Substance: INOTERSEN SODIUM
     Indication: Hereditary neuropathic amyloidosis
     Dosage: 284 MG/1.5 ML, QW
     Route: 058
     Dates: start: 20220505
  2. VITAMIN A ACETATE [Concomitant]
     Active Substance: VITAMIN A ACETATE
     Indication: Product used for unknown indication
     Dosage: UNK
     Route: 065
  3. COENZYME Q10 [Concomitant]
     Active Substance: DIETARY SUPPLEMENT\UBIDECARENONE
     Indication: Product used for unknown indication
     Dosage: UNK
     Route: 065

REACTIONS (10)
  - Glomerulonephritis [Recovering/Resolving]
  - Pyrexia [Recovered/Resolved]
  - Glaucoma surgery [Recovered/Resolved]
  - Eye disorder [Recovered/Resolved]
  - Gastric disorder [Not Recovered/Not Resolved]
  - Peripheral swelling [Recovered/Resolved]
  - Proteinuria [Unknown]
  - Urine protein/creatinine ratio increased [Unknown]
  - Glaucoma [Not Recovered/Not Resolved]
  - Platelet count decreased [Unknown]

NARRATIVE: CASE EVENT DATE: 20220609
